FAERS Safety Report 5238073-9 (Version None)
Quarter: 2007Q1

REPORT INFORMATION
  Report Type: 
  Country: None (occurrence: None)
  Receive Date: 20070209
  Receipt Date: 20070209
  Transmission Date: 20070707
  Serious: Yes (Other)
  Sender: FDA-Public Use
  Company Number: None

PATIENT
  Sex: Female
  Weight: 30.391 kg

DRUGS (2)
  1. EFFEXOR XR [Suspect]
     Indication: ANXIETY
     Dosage: 37.5 MG. DAILY PO
     Route: 048
     Dates: start: 20070109, end: 20070109
  2. EFFEXOR XR [Suspect]
     Indication: DEPRESSION
     Dosage: 37.5 MG. DAILY PO
     Route: 048
     Dates: start: 20070109, end: 20070109

REACTIONS (2)
  - MUSCLE RIGIDITY [None]
  - TRISMUS [None]
